FAERS Safety Report 8646877 (Version 3)
Quarter: 2012Q4

REPORT INFORMATION
  Report Type: 
  Country: US (occurrence: US)
  Receive Date: 20120703
  Receipt Date: 20120918
  Transmission Date: 20130627
  Serious: Yes (Hospitalization)
  Sender: FDA-Public Use
  Company Number: US-CELGENEUS-163-21880-12063543

PATIENT
  Age: 69 None
  Sex: Male

DRUGS (3)
  1. REVLIMID [Suspect]
     Indication: MULTIPLE MYELOMA
     Dosage: 25 Milligram
     Route: 048
     Dates: start: 201205
  2. REVLIMID [Suspect]
     Dosage: 10-15 mg
     Route: 048
     Dates: start: 201207
  3. PLASMA [Concomitant]
     Indication: DRUG USE FOR UNKNOWN INDICATION
     Dosage: 4 Units
     Route: 041

REACTIONS (5)
  - White blood cell count increased [Recovered/Resolved]
  - Renal impairment [Recovered/Resolved]
  - Blood potassium decreased [Recovered/Resolved]
  - Platelet count decreased [Recovered/Resolved]
  - Rash [Recovered/Resolved]
